FAERS Safety Report 21009737 (Version 7)
Quarter: 2022Q4

REPORT INFORMATION
  Report Type: Report from Study
  Country: CA (occurrence: CA)
  Receive Date: 20220627
  Receipt Date: 20221010
  Transmission Date: 20230113
  Serious: Yes (Hospitalization, Other)
  Sender: FDA-Public Use
  Company Number: CA-BRISTOL-MYERS SQUIBB COMPANY-2022-060390

PATIENT
  Age: 64 Year
  Sex: Male
  Weight: 106.5 kg

DRUGS (14)
  1. YERVOY [Suspect]
     Active Substance: IPILIMUMAB
     Indication: Peritoneal mesothelioma malignant
     Dosage: 1 IN 6 WEEKS
     Route: 042
     Dates: start: 20220525
  2. YERVOY [Suspect]
     Active Substance: IPILIMUMAB
     Dosage: 1 IN 6 WEEKS
     Route: 042
  3. YERVOY [Suspect]
     Active Substance: IPILIMUMAB
     Dosage: EVERY 6 WEEKS
     Route: 042
     Dates: start: 20220525
  4. OPDIVO [Suspect]
     Active Substance: NIVOLUMAB
     Indication: Peritoneal mesothelioma malignant
     Dosage: 1 IN 3 WEEKS. EXPIRY DATE: 31-AUG-2024
     Route: 042
     Dates: start: 20220525
  5. OPDIVO [Suspect]
     Active Substance: NIVOLUMAB
     Dosage: EVERY 3 WEEKS
     Route: 042
     Dates: start: 20220525
  6. OPDIVO [Suspect]
     Active Substance: NIVOLUMAB
     Dosage: Q3 WEEKS
     Route: 042
     Dates: start: 20220525
  7. CARBOPLATIN;PEMETREXED [Concomitant]
  8. DEXAMETHASONE [Concomitant]
     Active Substance: DEXAMETHASONE
     Dosage: FOR 2 DAYS
  9. INDAPAMIDE\PERINDOPRIL ARGININE [Concomitant]
     Active Substance: INDAPAMIDE\PERINDOPRIL ARGININE
  10. CYMBALTA [Concomitant]
     Active Substance: DULOXETINE HYDROCHLORIDE
     Indication: Pain
  11. PANTOPRAZOLE [Concomitant]
     Active Substance: PANTOPRAZOLE
  12. VITAMIN B12 [Concomitant]
     Active Substance: CYANOCOBALAMIN
  13. FOLIC ACID [Concomitant]
     Active Substance: FOLIC ACID
  14. HYDROMORPHONE [Concomitant]
     Active Substance: HYDROMORPHONE

REACTIONS (16)
  - Ascites [Unknown]
  - Vomiting [Recovered/Resolved]
  - Somnolence [Unknown]
  - Decreased appetite [Unknown]
  - Pain [Unknown]
  - Nausea [Unknown]
  - Fatigue [Unknown]
  - Malaise [Unknown]
  - Dyspnoea [Unknown]
  - Intentional product use issue [Unknown]
  - Abdominal distension [Recovered/Resolved]
  - Oedema peripheral [Unknown]
  - Depression [Unknown]
  - Condition aggravated [Unknown]
  - Intestinal obstruction [Unknown]
  - Weight decreased [Unknown]

NARRATIVE: CASE EVENT DATE: 20220722
